FAERS Safety Report 6964531-2 (Version None)
Quarter: 2010Q3

REPORT INFORMATION
  Report Type: 
  Country: None (occurrence: None)
  Receive Date: 20100903
  Receipt Date: 20100827
  Transmission Date: 20110219
  Serious: Yes (Other)
  Sender: FDA-Public Use
  Company Number: US-ASTRAZENECA-2007UW09602

PATIENT
  Age: 38 Year
  Sex: Female
  Weight: 113.9 kg

DRUGS (32)
  1. SEROQUEL [Suspect]
     Indication: BIPOLAR DISORDER
     Route: 048
     Dates: start: 19980901, end: 20090101
  2. SEROQUEL [Suspect]
     Indication: DEPRESSION
     Route: 048
     Dates: start: 19980901, end: 20090101
  3. SEROQUEL [Suspect]
     Dosage: STRENGTH - 25 MG, 100 MG, 200 MG, 300 MG  DOSE - 25 MG - 300 MG
     Route: 048
     Dates: start: 20030908
  4. SEROQUEL [Suspect]
     Dosage: STRENGTH - 25 MG, 100 MG, 200 MG, 300 MG  DOSE - 25 MG - 300 MG
     Route: 048
     Dates: start: 20030908
  5. METHADONE HCL [Concomitant]
     Route: 048
     Dates: start: 20051207
  6. BEXTRA [Concomitant]
     Dates: start: 20051207
  7. DEPAKOTE [Concomitant]
     Dates: start: 19950101, end: 20090101
  8. DEPAKOTE [Concomitant]
     Dosage: STRENGTH - 250 MG, 500 MG  DOSE - 250 MG - 1500 MG DAILY
     Dates: start: 20030818
  9. LEXAPRO [Concomitant]
     Dosage: STRENGTH - 5 MG, 20 MG  DOSE - 5 MG - 20 MG DAILY
     Route: 048
     Dates: start: 20051207
  10. ZOLOFT [Concomitant]
     Dates: start: 20030908
  11. GABAPENTIN [Concomitant]
     Dates: start: 20051207
  12. MOBIC [Concomitant]
     Dates: start: 20051207
  13. TOPROL-XL [Concomitant]
     Dosage: STRENGTH - 50 MG, 100 MG  DOSE - 50 MG - 100 MG DAILY
     Dates: start: 20030918
  14. ZANAFLEX [Concomitant]
     Dosage: STRENGTH - 4 MG, 8 MG  DOSE - 4 MG - 12 MG DAILY
     Dates: start: 20051207
  15. PREVACID [Concomitant]
     Indication: PANCREATITIS
     Dosage: STRENGTH - 15 MG, 30 MG  DOSE - 15 MG - 30 MG DAILY
     Dates: start: 20030905
  16. VISTARIL [Concomitant]
     Dates: start: 19980101
  17. VISTARIL [Concomitant]
     Dates: start: 20051207
  18. TOPAMAX [Concomitant]
     Dates: start: 20051207
  19. WELLBUTRIN XL [Concomitant]
     Dates: start: 19980101
  20. WELLBUTRIN XL [Concomitant]
     Dates: start: 20041008
  21. ASPIRIN [Concomitant]
     Dates: start: 20051207
  22. LAMICTAL [Concomitant]
     Indication: BIPOLAR I DISORDER
     Dates: start: 20051211
  23. RISPERDAL [Concomitant]
     Indication: DEPRESSION
     Dates: start: 19970101, end: 19990101
  24. RISPERDAL [Concomitant]
     Indication: BIPOLAR DISORDER
     Dates: start: 19970101, end: 19990101
  25. ABILIFY [Concomitant]
     Dates: start: 20070101, end: 20100101
  26. GEODON [Concomitant]
     Dates: start: 20050801, end: 20080101
  27. HALDOL [Concomitant]
     Dates: start: 20060427, end: 20060527
  28. TRAZODONE HCL [Concomitant]
     Dates: start: 19950101, end: 20030101
  29. CLOZARIL [Concomitant]
     Dates: start: 20010101, end: 20030101
  30. CYMBALTA [Concomitant]
     Dates: start: 20090101
  31. KOLONOPINE [Concomitant]
     Indication: ANXIETY
     Dosage: 0.5 MG TO 1 MG TWO TIMES ADAY
     Dates: start: 19980101
  32. AMBIEN [Concomitant]
     Dates: start: 20070101, end: 20100101

REACTIONS (13)
  - ABDOMINAL PAIN UPPER [None]
  - BACK DISORDER [None]
  - BLOOD CHOLESTEROL INCREASED [None]
  - BLOOD TRIGLYCERIDES INCREASED [None]
  - DRUG PRESCRIBING ERROR [None]
  - GALLBLADDER DISORDER [None]
  - HYPERLIPIDAEMIA [None]
  - IRRITABLE BOWEL SYNDROME [None]
  - OBESITY [None]
  - OSTEOPOROSIS [None]
  - PANCREATITIS [None]
  - PANCREATITIS CHRONIC [None]
  - SCIATICA [None]
